FAERS Safety Report 10705630 (Version 2)
Quarter: 2015Q1

REPORT INFORMATION
  Report Type: Spontaneous
  Country: US (occurrence: US)
  Receive Date: 20150112
  Receipt Date: 20150112
  Transmission Date: 20150721
  Serious: No
  Sender: FDA-Public Use
  Company Number: US-GLAXOSMITHKLINE-A1079446A

PATIENT

DRUGS (7)
  1. DIGOXIN. [Concomitant]
     Active Substance: DIGOXIN
  2. BROVANA [Concomitant]
     Active Substance: ARFORMOTEROL TARTRATE
  3. PROMACTA [Suspect]
     Active Substance: ELTROMBOPAG OLAMINE
     Indication: IMMUNE THROMBOCYTOPENIC PURPURA
     Dosage: 50 MG EVERY OTHER DAY
     Route: 048
     Dates: start: 201401
  4. VITAMIN D [Concomitant]
     Active Substance: CHOLECALCIFEROL
  5. CLORAZEPATE [Concomitant]
     Active Substance: CLORAZEPATE DIPOTASSIUM
  6. FLECAINIDE [Concomitant]
     Active Substance: FLECAINIDE
  7. PROMACTA [Suspect]
     Active Substance: ELTROMBOPAG OLAMINE
     Dates: start: 201401

REACTIONS (2)
  - Platelet count abnormal [Not Recovered/Not Resolved]
  - Drug administration error [Unknown]
